FAERS Safety Report 8161829-X (Version None)
Quarter: 2012Q1

REPORT INFORMATION
  Report Type: 
  Country: None (occurrence: None)
  Receive Date: 20120224
  Receipt Date: 20110630
  Transmission Date: 20120608
  Serious: No
  Sender: FDA-Public Use
  Company Number: US-BRISTOL-MYERS SQUIBB COMPANY-15867799

PATIENT
  Age: 79 Year
  Sex: Male
  Weight: 102 kg

DRUGS (1)
  1. METFORMIN HCL [Suspect]
     Indication: DIABETES MELLITUS
     Dosage: HE TAKES 850 MG OF METFORMIN IN THE MORNING AND 850 MG AT NIGHT.

REACTIONS (1)
  - AGEUSIA [None]
